FAERS Safety Report 8010416-2 (Version None)
Quarter: 2011Q4

REPORT INFORMATION
  Report Type: 
  Country: None (occurrence: None)
  Receive Date: 20111228
  Receipt Date: 20111222
  Transmission Date: 20120403
  Serious: No
  Sender: FDA-Public Use
  Company Number: US-JNJFOC-20111211285

PATIENT
  Age: 25 Year
  Sex: Female

DRUGS (2)
  1. INVEGA SUSTENNA [Suspect]
     Indication: BIPOLAR DISORDER
     Route: 030
     Dates: start: 20110701
  2. INVEGA SUSTENNA [Suspect]
     Route: 030

REACTIONS (5)
  - FEELING ABNORMAL [None]
  - LEARNING DISORDER [None]
  - DIZZINESS [None]
  - ANXIETY [None]
  - TREMOR [None]
